FAERS Safety Report 7656356-X (Version None)
Quarter: 2011Q3

REPORT INFORMATION
  Report Type: 
  Country: None (occurrence: None)
  Receive Date: 20110804
  Receipt Date: 20100713
  Transmission Date: 20111222
  Serious: Yes (Hospitalization)
  Sender: FDA-Public Use
  Company Number: US-GLAXOSMITHKLINE-A0871759A

PATIENT
  Age: 54 Year
  Sex: Male

DRUGS (1)
  1. AVANDIA [Suspect]
     Indication: TYPE 2 DIABETES MELLITUS
     Dosage: 8MG PER DAY
     Route: 048
     Dates: start: 20040105, end: 20080223

REACTIONS (6)
  - VASCULAR GRAFT [None]
  - ANGINA UNSTABLE [None]
  - ASTHENIA [None]
  - CHEST PAIN [None]
  - MOBILITY DECREASED [None]
  - CARDIAC FAILURE CHRONIC [None]
